FAERS Safety Report 23703079 (Version 1)
Quarter: 2024Q2

REPORT INFORMATION
  Report Type: Spontaneous
  Country: DE (occurrence: DE)
  Receive Date: 20240403
  Receipt Date: 20240403
  Transmission Date: 20240715
  Serious: Yes (Hospitalization, Other)
  Sender: FDA-Public Use
  Company Number: DE-BAYER-2024A046626

PATIENT
  Age: 63 Year
  Sex: Male

DRUGS (2)
  1. XARELTO [Suspect]
     Active Substance: RIVAROXABAN
     Indication: Atrial fibrillation
     Dosage: UNK
     Route: 048
     Dates: start: 2013
  2. HEPARIN [Concomitant]
     Active Substance: HEPARIN SODIUM

REACTIONS (10)
  - Ophthalmic vascular thrombosis [Unknown]
  - Papilloedema [Unknown]
  - Post procedural haemorrhage [Unknown]
  - Tooth socket haemostasis [Unknown]
  - Large intestine polyp [Unknown]
  - Cataract [Unknown]
  - Tooth disorder [Unknown]
  - Vision blurred [Unknown]
  - Visual impairment [Unknown]
  - Tooth extraction [Unknown]
